FAERS Safety Report 10050103 (Version 2)
Quarter: 2014Q2

REPORT INFORMATION
  Report Type: Report from Study
  Country: NL (occurrence: NL)
  Receive Date: 20140401
  Receipt Date: 20140401
  Transmission Date: 20141212
  Serious: Yes (Other)
  Sender: FDA-Public Use
  Company Number: NL-BAYER-2014-043319

PATIENT
  Age: 31 Year
  Sex: Female

DRUGS (1)
  1. BETAFERON [Suspect]
     Dosage: 250 ?G, QOD
     Dates: start: 201306, end: 2014

REACTIONS (2)
  - Cyst [Unknown]
  - Lymphadenopathy [None]
